FAERS Safety Report 6544477-4 (Version None)
Quarter: 2010Q1

REPORT INFORMATION
  Report Type: 
  Country: None (occurrence: None)
  Receive Date: 20100121
  Receipt Date: 20091228
  Transmission Date: 20100710
  Serious: No
  Sender: FDA-Public Use
  Company Number: FR-ROCHE-676772

PATIENT
  Weight: 0.8 kg

DRUGS (8)
  1. TAMIFLU [Suspect]
     Dates: start: 20091017, end: 20091021
  2. ROCEPHIN [Suspect]
     Indication: DRUG USE FOR UNKNOWN INDICATION
     Dates: start: 20091017, end: 20091021
  3. ROVAMYCINE [Suspect]
     Indication: DRUG USE FOR UNKNOWN INDICATION
     Dates: start: 20091017, end: 20091022
  4. CLAMOXYL [Concomitant]
  5. EFFERALGAN [Concomitant]
  6. HEXASPRAY [Concomitant]
  7. DERINOX [Concomitant]
  8. RHINATHIOL [Concomitant]

REACTIONS (2)
  - NO ADVERSE EVENT [None]
  - PREGNANCY [None]
